FAERS Safety Report 12660577 (Version 2)
Quarter: 2016Q3

REPORT INFORMATION
  Report Type: Spontaneous
  Country: US (occurrence: US)
  Receive Date: 20160817
  Receipt Date: 20160901
  Transmission Date: 20161109
  Serious: No
  Sender: FDA-Public Use
  Company Number: US-RELYPSA-RLY2016000509

PATIENT
  Age: 76 Year
  Sex: Female

DRUGS (1)
  1. VELTASSA [Suspect]
     Active Substance: PATIROMER
     Indication: BLOOD POTASSIUM INCREASED
     Dosage: UNK, QD
     Route: 048
     Dates: start: 20160409, end: 20160418

REACTIONS (4)
  - Fatigue [Recovering/Resolving]
  - Muscle spasms [Recovered/Resolved]
  - Muscular weakness [Recovering/Resolving]
  - Somnolence [Recovering/Resolving]

NARRATIVE: CASE EVENT DATE: 201604
